FAERS Safety Report 8586800-5 (Version None)
Quarter: 2012Q3

REPORT INFORMATION
  Report Type: 
  Country: None (occurrence: None)
  Receive Date: 20120810
  Receipt Date: 20120725
  Transmission Date: 20120928
  Serious: No
  Sender: FDA-Public Use
  Company Number: US-009507513-1207USA007219

PATIENT

DRUGS (8)
  1. ANACIN [Concomitant]
     Indication: BACK PAIN
     Dosage: UNK, UNKNOWN
  2. ASPIRIN [Concomitant]
     Indication: ARTHRITIS
  3. ANACIN [Concomitant]
     Indication: HEADACHE
  4. ANACIN [Concomitant]
     Indication: ARTHRITIS
  5. ASPIRIN [Concomitant]
     Indication: HEADACHE
  6. OPTIVE [Concomitant]
     Indication: DRY EYE
     Dosage: UNK, UNKNOWN
     Route: 031
  7. CLARITIN [Suspect]
     Indication: HYPERSENSITIVITY
     Dosage: 10 MG, ONCE
     Route: 048
     Dates: start: 20120704
  8. ASPIRIN [Concomitant]
     Indication: BACK PAIN
     Dosage: UNK, UNKNOWN

REACTIONS (1)
  - DRUG INEFFECTIVE [None]
